FAERS Safety Report 15755539 (Version 1)
Quarter: 2018Q4

REPORT INFORMATION
  Report Type: Spontaneous
  Country: GB (occurrence: GB)
  Receive Date: 20181224
  Receipt Date: 20181224
  Transmission Date: 20190205
  Serious: Yes (Life-Threatening)
  Sender: FDA-Public Use
  Company Number: GB-ACCORD-096872

PATIENT
  Age: 65 Year
  Sex: Male

DRUGS (13)
  1. DEGARELIX [Concomitant]
     Active Substance: DEGARELIX
  2. SIMVASTATIN. [Concomitant]
     Active Substance: SIMVASTATIN
  3. FUROSEMIDE. [Concomitant]
     Active Substance: FUROSEMIDE
  4. METOCLOPRAMIDE. [Concomitant]
     Active Substance: METOCLOPRAMIDE
  5. SODIUM HYDROGEN CARBONATE/POTASSIUM CHLORIDE/MACROGOL 3350/SODIUM CHLORIDE [Concomitant]
  6. METHYLDOPA. [Concomitant]
     Active Substance: METHYLDOPA
  7. TIOTROPIUM/TIOTROPIUM BROMIDE [Concomitant]
  8. SERETIDE [Concomitant]
     Active Substance: FLUTICASONE PROPIONATE\SALMETEROL XINAFOATE
  9. BICALUTAMIDE. [Suspect]
     Active Substance: BICALUTAMIDE
     Indication: PROSTATE CANCER
     Route: 048
  10. ZEROBASE [Concomitant]
     Active Substance: MINERAL OIL\PETROLATUM
  11. DOCUSATE/DOCUSATE CALCIUM/DOCUSATE POTASSIUM/DOCUSATE SODIUM [Concomitant]
  12. XARELTO [Interacting]
     Active Substance: RIVAROXABAN
     Indication: PULMONARY EMBOLISM
     Route: 048
  13. SENNA ALEXANDRINA [Concomitant]
     Active Substance: SENNA LEAF

REACTIONS (2)
  - Drug interaction [Unknown]
  - Pulmonary embolism [Not Recovered/Not Resolved]
